FAERS Safety Report 15359745 (Version 1)
Quarter: 2018Q3

REPORT INFORMATION
  Report Type: Spontaneous
  Country: GB (occurrence: GB)
  Receive Date: 20180907
  Receipt Date: 20180907
  Transmission Date: 20181010
  Serious: Yes (Other)
  Sender: FDA-Public Use
  Company Number: GB-TEVA-2018-GB-952253

PATIENT
  Age: 52 Year
  Sex: Female
  Weight: 82.55 kg

DRUGS (2)
  1. EVOREL 50 [Concomitant]
  2. NITROFURANTOIN. [Suspect]
     Active Substance: NITROFURANTOIN
     Indication: CYSTITIS
     Dosage: 400 MILLIGRAM DAILY; ONE AT 10:00AM AND THE NEXT AT 10:00PM
     Route: 048
     Dates: start: 20180813, end: 20180813

REACTIONS (5)
  - Musculoskeletal stiffness [Recovered/Resolved]
  - Muscular weakness [Recovered/Resolved]
  - Coordination abnormal [Recovered/Resolved]
  - Headache [Recovered/Resolved]
  - Slow speech [Recovered/Resolved]

NARRATIVE: CASE EVENT DATE: 20180814
